FAERS Safety Report 23259435 (Version 1)
Quarter: 2023Q4

REPORT INFORMATION
  Report Type: Spontaneous
  Country: JP (occurrence: JP)
  Receive Date: 20231204
  Receipt Date: 20231204
  Transmission Date: 20240109
  Serious: Yes (Hospitalization)
  Sender: FDA-Public Use
  Company Number: JP-ELI_LILLY_AND_COMPANY-JP202311014181

PATIENT
  Age: 72 Year
  Sex: Male
  Weight: 73 kg

DRUGS (6)
  1. CYRAMZA [Suspect]
     Active Substance: RAMUCIRUMAB
     Indication: Rectal cancer
     Dosage: 420 MG, OTHER
     Route: 041
     Dates: start: 20230809, end: 20230830
  2. FLUOROURACIL [Concomitant]
     Active Substance: FLUOROURACIL
     Indication: Rectal cancer
  3. LEVOLEUCOVORIN CALCIUM [Concomitant]
     Active Substance: LEVOLEUCOVORIN CALCIUM
     Indication: Rectal cancer
  4. IRINOTECAN [Concomitant]
     Active Substance: IRINOTECAN
     Indication: Rectal cancer
  5. URSODIOL [Concomitant]
     Active Substance: URSODIOL
  6. AMLODIPINE BESYLATE\CANDESARTAN CILEXETIL [Concomitant]
     Active Substance: AMLODIPINE BESYLATE\CANDESARTAN CILEXETIL

REACTIONS (4)
  - Oedema [Recovering/Resolving]
  - Ascites [Recovering/Resolving]
  - Proteinuria [Recovering/Resolving]
  - Electrolyte imbalance [Unknown]

NARRATIVE: CASE EVENT DATE: 20230920
